FAERS Safety Report 22529315 (Version 1)
Quarter: 2023Q2

REPORT INFORMATION
  Report Type: Report from Study
  Country: US (occurrence: US)
  Receive Date: 20230607
  Receipt Date: 20230607
  Transmission Date: 20230722
  Serious: Yes (Hospitalization, Other)
  Sender: FDA-Public Use
  Company Number: US-GILEAD-2023-0631090

PATIENT
  Sex: Female

DRUGS (1)
  1. AZTREONAM LYSINE [Suspect]
     Active Substance: AZTREONAM LYSINE
     Indication: Cystic fibrosis
     Dosage: 73 MG, TID, INHALE 1 ML (75 MG) VIA ALTERA NEBULIZER CYCLING 28 DAYS ON, THEN 28 DAYS OFF
     Route: 065

REACTIONS (2)
  - Cystic fibrosis [Unknown]
  - Maternal exposure during pregnancy [Unknown]
